FAERS Safety Report 20086244 (Version 1)
Quarter: 2021Q4

REPORT INFORMATION
  Report Type: Spontaneous
  Country: US (occurrence: US)
  Receive Date: 20211118
  Receipt Date: 20211118
  Transmission Date: 20220303
  Serious: No
  Sender: FDA-Public Use
  Company Number: US-GALDERMA-US2021018015

PATIENT

DRUGS (1)
  1. DIFFERIN GEL [Suspect]
     Active Substance: ADAPALENE
     Indication: Acne
     Dosage: 1 DOSAGE FORM, QD, USED AT NIGHT
     Route: 061

REACTIONS (3)
  - Therapeutic response unexpected [Recovered/Resolved]
  - Intentional product misuse [Recovered/Resolved]
  - Extra dose administered [Recovered/Resolved]
